FAERS Safety Report 25138855 (Version 1)
Quarter: 2025Q1

REPORT INFORMATION
  Report Type: Spontaneous
  Country: GB (occurrence: GB)
  Receive Date: 20250331
  Receipt Date: 20250331
  Transmission Date: 20250409
  Serious: Yes (Disabling, Other)
  Sender: ACCORD
  Company Number: None

PATIENT
  Sex: Female

DRUGS (1)
  1. OXYBUTYNIN [Suspect]
     Active Substance: OXYBUTYNIN
     Indication: Urinary incontinence

REACTIONS (7)
  - Bradycardia [Recovering/Resolving]
  - Bladder pain [Recovering/Resolving]
  - Vision blurred [Recovering/Resolving]
  - Dizziness postural [Not Recovered/Not Resolved]
  - Pyrexia [Recovering/Resolving]
  - Muscular weakness [Not Recovered/Not Resolved]
  - Dizziness [Not Recovered/Not Resolved]
